FAERS Safety Report 6814678-6 (Version None)
Quarter: 2010Q3

REPORT INFORMATION
  Report Type: 
  Country: None (occurrence: None)
  Receive Date: 20100702
  Receipt Date: 20100623
  Transmission Date: 20110219
  Serious: Yes (Death, Other)
  Sender: FDA-Public Use
  Company Number: CA-PURDUE-CAN-2010-0001439

PATIENT
  Age: 36 Year
  Sex: Male

DRUGS (6)
  1. OXYCODONE HYDROCHLORIDE [Suspect]
     Indication: PRODUCT USED FOR UNKNOWN INDICATION
     Route: 065
  2. DIAZEPAM [Suspect]
     Indication: PRODUCT USED FOR UNKNOWN INDICATION
     Route: 065
  3. COCAINE [Suspect]
     Route: 065
  4. MARIJUANA [Suspect]
     Route: 065
  5. ELAVIL [Suspect]
     Indication: DEPRESSION
     Route: 065
  6. SEROQUEL [Suspect]
     Indication: ANXIETY
     Route: 065

REACTIONS (7)
  - ACCIDENTAL OVERDOSE [None]
  - CARDIAC ARREST [None]
  - DRUG ABUSE [None]
  - DYSARTHRIA [None]
  - HEPATIC STEATOSIS [None]
  - OVERDOSE [None]
  - SOMNOLENCE [None]
